FAERS Safety Report 6333325-3 (Version None)
Quarter: 2009Q3

REPORT INFORMATION
  Report Type: 
  Country: None (occurrence: None)
  Receive Date: 20090828
  Receipt Date: 20090818
  Transmission Date: 20100115
  Serious: No
  Sender: FDA-Public Use
  Company Number: ZA-ROCHE-650254

PATIENT
  Weight: 1.3 kg

DRUGS (2)
  1. TAMIFLU [Suspect]
     Dates: start: 20090801, end: 20090822
  2. RELENZA [Suspect]
     Dates: start: 20090801, end: 20090822

REACTIONS (2)
  - NO ADVERSE EVENT [None]
  - NORMAL NEWBORN [None]
